FAERS Safety Report 8115622-4 (Version None)
Quarter: 2012Q1

REPORT INFORMATION
  Report Type: 
  Country: None (occurrence: None)
  Receive Date: 20120206
  Receipt Date: 20120131
  Transmission Date: 20120608
  Serious: Yes (Other)
  Sender: FDA-Public Use
  Company Number: US-SANOFI-AVENTIS-2012SA006754

PATIENT
  Age: 76 Year
  Sex: Female

DRUGS (3)
  1. WARFARIN SODIUM [Concomitant]
  2. MULTAQ [Suspect]
     Indication: ATRIAL FIBRILLATION
     Route: 048
     Dates: start: 20120113
  3. LEVOTHYROXINE SODIUM [Concomitant]

REACTIONS (1)
  - ATRIAL FIBRILLATION [None]
